FAERS Safety Report 6687314-X (Version None)
Quarter: 2010Q2

REPORT INFORMATION
  Report Type: 
  Country: None (occurrence: None)
  Receive Date: 20100419
  Receipt Date: 20100407
  Transmission Date: 20101027
  Serious: Yes (Life-Threatening, Hospitalization)
  Sender: FDA-Public Use
  Company Number: DE-AMGEN-US404811

PATIENT
  Sex: Female
  Weight: 70 kg

DRUGS (7)
  1. ENBREL [Suspect]
     Indication: RHEUMATOID ARTHRITIS
     Route: 058
     Dates: start: 20090506, end: 20091201
  2. LANTAREL [Concomitant]
     Indication: RHEUMATOID ARTHRITIS
     Dosage: 10 MG PER WEEK
     Route: 048
     Dates: start: 20080101
  3. NAPROXEN [Concomitant]
     Indication: RHEUMATOID ARTHRITIS
     Route: 065
  4. LEVOTHYROXINE SODIUM [Concomitant]
     Dosage: 50 ?G PER DAY
     Route: 065
     Dates: start: 20081101
  5. PREDNISONE [Concomitant]
     Indication: RHEUMATOID ARTHRITIS
     Dosage: 10 MG PER DAY
     Route: 065
     Dates: start: 20070101, end: 20091001
  6. PREDNISONE [Concomitant]
     Dosage: 5 MG PER DAY
     Dates: start: 20091001
  7. UNSPECIFIED CONTRACEPTIVE [Concomitant]
     Route: 065

REACTIONS (1)
  - THALAMIC INFARCTION [None]
